FAERS Safety Report 5028598-3 (Version None)
Quarter: 2006Q2

REPORT INFORMATION
  Report Type: 
  Country: None (occurrence: None)
  Receive Date: 20060615
  Receipt Date: 20060615
  Transmission Date: 20061013
  Serious: Yes (Hospitalization)
  Sender: FDA-Public Use
  Company Number: None

PATIENT
  Age: 52 Year
  Sex: Female
  Weight: 79 kg

DRUGS (8)
  1. ACTONEL [Suspect]
     Indication: OSTEOPOROSIS
     Dosage: 35MG  PO  Q MONDAY    DURATION: CHRONIC
     Route: 048
  2. CELEBREX [Suspect]
     Indication: BACK PAIN
     Dosage: 200MG PO DAILY   DURATION: CHRONIC
     Route: 048
  3. ZANTAC [Concomitant]
  4. ZOLOFT [Concomitant]
  5. DIVALPROEX SODIUM EXTENDED RELEASE [Concomitant]
  6. OSCAL [Concomitant]
  7. TRAVATAN [Concomitant]
  8. TIMOLOL MALEATE [Concomitant]

REACTIONS (5)
  - ABDOMINAL PAIN [None]
  - EROSIVE OESOPHAGITIS [None]
  - HAEMATEMESIS [None]
  - HAEMOPTYSIS [None]
  - NAUSEA [None]
